FAERS Safety Report 10226985 (Version 1)
Quarter: 2014Q2

REPORT INFORMATION
  Report Type: Spontaneous
  Country: US (occurrence: US)
  Receive Date: 20140610
  Receipt Date: 20140610
  Transmission Date: 20141212
  Serious: Yes (Other)
  Sender: FDA-Public Use
  Company Number: US-BRISTOL-MYERS SQUIBB COMPANY-20941001

PATIENT
  Sex: Female

DRUGS (1)
  1. BYETTA [Suspect]
     Dates: start: 200701, end: 200803

REACTIONS (1)
  - Thyroid cancer [Unknown]
